FAERS Safety Report 7756620-X (Version None)
Quarter: 2011Q3

REPORT INFORMATION
  Report Type: 
  Country: None (occurrence: None)
  Receive Date: 20110916
  Receipt Date: 20110912
  Transmission Date: 20111222
  Serious: Yes (Other)
  Sender: FDA-Public Use
  Company Number: PHHY2011AR81566

PATIENT
  Sex: Female

DRUGS (1)
  1. TRILEPTAL [Suspect]
     Indication: AMNESIA
     Dosage: 300 MG, BID
     Dates: start: 20100901

REACTIONS (2)
  - OVARIAN CYST [None]
  - UTERINE CANCER [None]
